FAERS Safety Report 5718360-8 (Version None)
Quarter: 2008Q2

REPORT INFORMATION
  Report Type: 
  Country: None (occurrence: None)
  Receive Date: 20080425
  Receipt Date: 20071130
  Transmission Date: 20081010
  Serious: No
  Sender: FDA-Public Use
  Company Number: A0696770A

PATIENT
  Age: 53 Year
  Sex: Male

DRUGS (2)
  1. DEXEDRINE [Suspect]
     Indication: NARCOLEPSY
     Dosage: 70MG UNKNOWN
     Route: 048
  2. NO CONCURRENT MEDICATION [Concomitant]

REACTIONS (1)
  - DRUG INEFFECTIVE [None]
